FAERS Safety Report 11094867 (Version 1)
Quarter: 2015Q2

REPORT INFORMATION
  Report Type: Spontaneous
  Country: US (occurrence: US)
  Receive Date: 20150506
  Receipt Date: 20150506
  Transmission Date: 20150821
  Serious: Yes (Death)
  Sender: FDA-Public Use
  Company Number: US-LPDUSPRD-20150287

PATIENT
  Age: 59 Year
  Sex: Male
  Weight: 58.51 kg

DRUGS (1)
  1. VENOFER [Suspect]
     Active Substance: IRON SUCROSE
     Dosage: DOSE NOT PROVIDED
     Route: 042
     Dates: start: 20150309

REACTIONS (2)
  - Death [Fatal]
  - Procedural complication [None]

NARRATIVE: CASE EVENT DATE: 20150309
